FAERS Safety Report 23022025 (Version 3)
Quarter: 2023Q4

REPORT INFORMATION
  Report Type: Spontaneous
  Country: BR (occurrence: None)
  Receive Date: 20231003
  Receipt Date: 20231114
  Transmission Date: 20240110
  Serious: Yes (Other)
  Sender: FDA-Public Use
  Company Number: 2023A223191

PATIENT
  Age: 847 Month

DRUGS (12)
  1. FASENRA [Suspect]
     Active Substance: BENRALIZUMAB
     Indication: Asthma
     Route: 058
     Dates: start: 2023
  2. FASENRA [Suspect]
     Active Substance: BENRALIZUMAB
     Indication: Eosinophilia
     Route: 058
     Dates: start: 2023
  3. FASENRA [Suspect]
     Active Substance: BENRALIZUMAB
     Indication: Asthma
     Route: 058
  4. FASENRA [Suspect]
     Active Substance: BENRALIZUMAB
     Indication: Eosinophilia
     Route: 058
  5. SYMBICORT [Suspect]
     Active Substance: BUDESONIDE\FORMOTEROL FUMARATE DIHYDRATE
     Dosage: 160/4.5MCG, TWICE UNKNOWN
     Route: 055
  6. SYMBICORT [Suspect]
     Active Substance: BUDESONIDE\FORMOTEROL FUMARATE DIHYDRATE
     Dosage: TWICE, 6/200MCG, UNKNOWN UNKNOWN
     Route: 055
  7. CHONDROITIN [Concomitant]
     Active Substance: CHONDROITIN
  8. VITAMIN C [Concomitant]
     Active Substance: ASCORBIC ACID
  9. NASONEX [Concomitant]
     Active Substance: MOMETASONE FUROATE
     Dosage: TWICE
  10. COENZYME Q10 [Concomitant]
     Active Substance: DIETARY SUPPLEMENT\UBIDECARENONE
  11. ATORVASTATIN [Concomitant]
     Active Substance: ATORVASTATIN
  12. VITAMIN D [Concomitant]
     Active Substance: VITAMIN D NOS

REACTIONS (6)
  - Drug eruption [Recovering/Resolving]
  - Lichenoid keratosis [Recovering/Resolving]
  - Oedema [Unknown]
  - Scoliosis [Unknown]
  - Osteoarthritis [Unknown]
  - Product use in unapproved indication [Unknown]

NARRATIVE: CASE EVENT DATE: 20230801
